FAERS Safety Report 13415876 (Version 1)
Quarter: 2017Q2

REPORT INFORMATION
  Report Type: Spontaneous
  Country: CN (occurrence: CN)
  Receive Date: 20170407
  Receipt Date: 20170407
  Transmission Date: 20170830
  Serious: Yes (Other)
  Sender: FDA-Public Use
  Company Number: CN-PFIZER INC-2017152641

PATIENT
  Age: 34 Year
  Sex: Female
  Weight: 55 kg

DRUGS (2)
  1. METHYLPREDNISOLONE SODIUM SUCCINATE. [Suspect]
     Active Substance: METHYLPREDNISOLONE SODIUM SUCCINATE
     Indication: HYPERSENSITIVITY
     Dosage: 50 MG, 1X/DAY
     Route: 041
     Dates: start: 20161226, end: 20170105
  2. COMPOUND GLYCYRRHIZIN INJECTION (CYSTEINE\GLYCINE\GLYCYRRHIZIN) [Suspect]
     Active Substance: CYSTEINE\GLYCINE\GLYCYRRHIZIN
     Indication: HYPERSENSITIVITY
     Dosage: 160 MG, 1X/DAY
     Route: 041
     Dates: start: 20161222, end: 20161226

REACTIONS (1)
  - Hypokalaemia [Unknown]

NARRATIVE: CASE EVENT DATE: 20170104
